FAERS Safety Report 7379606-6 (Version None)
Quarter: 2011Q1

REPORT INFORMATION
  Report Type: 
  Country: None (occurrence: None)
  Receive Date: 20110318
  Receipt Date: 20110314
  Transmission Date: 20110831
  Serious: Yes (Hospitalization)
  Sender: FDA-Public Use
  Company Number: A0918005A

PATIENT
  Age: 83 Year
  Sex: Female

DRUGS (4)
  1. VITAMIN D [Concomitant]
  2. DIOVAN HCT [Concomitant]
  3. ATORVASTATIN CALCIUM [Concomitant]
  4. SIMETHICONE (FORMULATION UNKNOWN) (SIMETHICONE) [Suspect]
     Indication: GASTROINTESTINAL DISORDER
     Dosage: ORAL
     Route: 048
     Dates: start: 20110212, end: 20110212

REACTIONS (10)
  - LIVER FUNCTION TEST ABNORMAL [None]
  - TREMOR [None]
  - MALAISE [None]
  - BILE DUCT STONE [None]
  - FEELING COLD [None]
  - VOMITING [None]
  - CHILLS [None]
  - ABDOMINAL DISCOMFORT [None]
  - JAUNDICE [None]
  - DRUG INEFFECTIVE [None]
